FAERS Safety Report 25502352 (Version 2)
Quarter: 2025Q3

REPORT INFORMATION
  Report Type: Report from Study
  Country: US (occurrence: US)
  Receive Date: 20250702
  Receipt Date: 20250709
  Transmission Date: 20251020
  Serious: No
  Sender: ABBVIE
  Company Number: US-ABBVIE-6352401

PATIENT
  Sex: Female

DRUGS (1)
  1. RISANKIZUMAB [Suspect]
     Active Substance: RISANKIZUMAB
     Indication: Crohn^s disease
     Route: 058
     Dates: end: 2025

REACTIONS (5)
  - Malaise [Unknown]
  - Red blood cell count decreased [Recovering/Resolving]
  - Off label use [Unknown]
  - Vitamin B12 decreased [Recovering/Resolving]
  - Fatigue [Unknown]
